FAERS Safety Report 14897720 (Version 1)
Quarter: 2018Q2

REPORT INFORMATION
  Report Type: Report from Study
  Country: CA (occurrence: CA)
  Receive Date: 20180515
  Receipt Date: 20180515
  Transmission Date: 20180711
  Serious: Yes (Other)
  Sender: FDA-Public Use
  Company Number: CA-JNJFOC-20180514096

PATIENT
  Sex: Female
  Weight: 67 kg

DRUGS (5)
  1. ACIDE FOLIQUE [Concomitant]
     Active Substance: FOLIC ACID
     Dosage: STRENGTH = 5 MG
     Route: 048
  2. VITAMIN D [Concomitant]
     Active Substance: CHOLECALCIFEROL
     Dosage: STRENGTH = 10000 IU
     Route: 048
  3. METHOTREXATE. [Concomitant]
     Active Substance: METHOTREXATE
     Dosage: STRENGTH = 15 MG
     Route: 048
  4. VICTOZA [Concomitant]
     Active Substance: LIRAGLUTIDE
     Dosage: STRENGTH = 1.2 MG
     Route: 058
  5. REMICADE [Suspect]
     Active Substance: INFLIXIMAB
     Indication: CROHN^S DISEASE
     Dosage: STRENGTH = 100 MG
     Route: 042

REACTIONS (1)
  - Skin cancer [Recovering/Resolving]
